FAERS Safety Report 20891772 (Version 7)
Quarter: 2022Q3

REPORT INFORMATION
  Report Type: Report from Study
  Country: AR (occurrence: AR)
  Receive Date: 20220530
  Receipt Date: 20220915
  Transmission Date: 20221027
  Serious: Yes (Death, Hospitalization, Other)
  Sender: FDA-Public Use
  Company Number: AR-BRISTOL-MYERS SQUIBB COMPANY-2022-047833

PATIENT
  Age: 77 Year
  Sex: Male
  Weight: 74 kg

DRUGS (7)
  1. ELIQUIS [Suspect]
     Active Substance: APIXABAN
     Indication: Cerebrovascular accident prophylaxis
     Route: 048
     Dates: start: 20180411, end: 202011
  2. ELIQUIS [Suspect]
     Active Substance: APIXABAN
     Route: 048
     Dates: start: 20201106, end: 20220419
  3. CARVEDILOL [Concomitant]
     Active Substance: CARVEDILOL
  4. AMIODARONE [Concomitant]
     Active Substance: AMIODARONE
  5. ASPIRIN [Concomitant]
     Active Substance: ASPIRIN
  6. DEXOPRAL [Concomitant]
  7. ROSUVASTATIN [Concomitant]
     Active Substance: ROSUVASTATIN

REACTIONS (5)
  - Respiratory failure [Fatal]
  - Small cell lung cancer [Fatal]
  - Rectal haemorrhage [Recovered/Resolved]
  - Diverticulum [Unknown]
  - Intentional product use issue [Unknown]

NARRATIVE: CASE EVENT DATE: 20201101
